FAERS Safety Report 15010033 (Version 9)
Quarter: 2020Q1

REPORT INFORMATION
  Report Type: Spontaneous
  Country: US (occurrence: US)
  Receive Date: 20180614
  Receipt Date: 20200219
  Transmission Date: 20200409
  Serious: Yes (Other)
  Sender: FDA-Public Use
  Company Number: US-PFIZER INC-2018240009

PATIENT
  Age: 81 Year
  Sex: Female
  Weight: 97.5 kg

DRUGS (3)
  1. XELJANZ XR [Suspect]
     Active Substance: TOFACITINIB CITRATE
     Indication: RHEUMATOID ARTHRITIS
     Dosage: 11 MG, DAILY
     Route: 048
     Dates: start: 201512, end: 201807
  2. XELJANZ XR [Suspect]
     Active Substance: TOFACITINIB CITRATE
     Dosage: 11 MG, DAILY
     Route: 048
     Dates: start: 201808
  3. ARESTIN [Concomitant]
     Active Substance: MINOCYCLINE HYDROCHLORIDE
     Dosage: UNK

REACTIONS (6)
  - Blindness [Unknown]
  - Macular degeneration [Unknown]
  - Back disorder [Unknown]
  - Oculopharyngeal dystrophy [Unknown]
  - Dyspnoea [Recovering/Resolving]
  - Hypertension [Unknown]
